FAERS Safety Report 19202564 (Version 1)
Quarter: 2021Q2

REPORT INFORMATION
  Report Type: Spontaneous
  Country: CA (occurrence: CA)
  Receive Date: 20210430
  Receipt Date: 20210430
  Transmission Date: 20210717
  Serious: Yes (Other)
  Sender: FDA-Public Use
  Company Number: CA-IGSA-BIG0014262

PATIENT
  Age: 65 Year
  Sex: Male

DRUGS (1)
  1. ALBUMIN (HUMAN) [Suspect]
     Active Substance: ALBUMIN HUMAN
     Indication: PRODUCT USED FOR UNKNOWN INDICATION
     Dosage: 100 MILLILITER, QD
     Route: 042

REACTIONS (2)
  - Dyspnoea [Recovered/Resolved]
  - Hypoxia [Recovered/Resolved]
